FAERS Safety Report 13300751 (Version 5)
Quarter: 2017Q3

REPORT INFORMATION
  Report Type: Spontaneous
  Country: IT (occurrence: IT)
  Receive Date: 20170307
  Receipt Date: 20170808
  Transmission Date: 20171127
  Serious: Yes (Other)
  Sender: FDA-Public Use
  Company Number: IT-ACCORD-048684

PATIENT
  Age: 51 Year
  Sex: Female
  Weight: 62 kg

DRUGS (3)
  1. GEMCITABINE/GEMCITABINE HYDROCHLORIDE [Suspect]
     Active Substance: GEMCITABINE\GEMCITABINE HYDROCHLORIDE
     Indication: OVARIAN CANCER METASTATIC
     Route: 042
     Dates: start: 20160229
  2. AVASTIN [Suspect]
     Active Substance: BEVACIZUMAB
     Indication: OVARIAN CANCER METASTATIC
     Dosage: 900 MG
     Route: 042
     Dates: start: 20160229
  3. CISPLATIN. [Suspect]
     Active Substance: CISPLATIN
     Indication: OVARIAN CANCER METASTATIC
     Route: 042
     Dates: start: 20160229

REACTIONS (15)
  - Laryngitis [Recovering/Resolving]
  - Alopecia [Not Recovered/Not Resolved]
  - Anaemia [Recovering/Resolving]
  - Nausea [Unknown]
  - Mastication disorder [Recovering/Resolving]
  - Muscle spasms [Recovering/Resolving]
  - Neutropenia [Recovering/Resolving]
  - Influenza [Recovering/Resolving]
  - Pain in jaw [Unknown]
  - Thrombocytopenia [Recovering/Resolving]
  - Oedema peripheral [Not Recovered/Not Resolved]
  - Vomiting [Unknown]
  - Infusion related reaction [Recovering/Resolving]
  - Rash maculo-papular [Recovering/Resolving]
  - Neurotoxicity [Unknown]

NARRATIVE: CASE EVENT DATE: 20160301
